FAERS Safety Report 13549165 (Version 1)
Quarter: 2017Q2

REPORT INFORMATION
  Report Type: Report from Study
  Country: None (occurrence: AT)
  Receive Date: 20170516
  Receipt Date: 20170516
  Transmission Date: 20170830
  Serious: Yes (Hospitalization)
  Sender: FDA-Public Use
  Company Number: AT-ABBVIE-17K-009-1974860-00

PATIENT
  Age: 74 Year
  Sex: Male

DRUGS (1)
  1. DUODOPA [Suspect]
     Active Substance: CARBIDOPA\LEVODOPA
     Indication: PARKINSON^S DISEASE
     Dosage: 16H THERAPY??MD: 3.5ML, CR DAYTIME: 2ML, ED: 2ML
     Route: 050
     Dates: start: 20070615

REACTIONS (2)
  - Mobility decreased [Recovering/Resolving]
  - Device use issue [Recovering/Resolving]

NARRATIVE: CASE EVENT DATE: 20170511
